FAERS Safety Report 26047545 (Version 2)
Quarter: 2025Q4

REPORT INFORMATION
  Report Type: Spontaneous
  Country: US (occurrence: US)
  Receive Date: 20251114
  Receipt Date: 20251208
  Transmission Date: 20260117
  Serious: Yes (Hospitalization, Other)
  Sender: BAYER HEALTHCARE PHARMACEUTICALS INC.
  Company Number: US-BAYER-2025A149311

PATIENT
  Age: 32 Year
  Sex: Female

DRUGS (1)
  1. ESTRADIOL [Suspect]
     Active Substance: ESTRADIOL
     Indication: Contraception
     Route: 062

REACTIONS (3)
  - Cerebral venous thrombosis [None]
  - Product use in unapproved indication [None]
  - Product prescribing issue [None]
